FAERS Safety Report 15582085 (Version 2)
Quarter: 2019Q1

REPORT INFORMATION
  Report Type: Report from Study
  Country: None (occurrence: US)
  Receive Date: 20181105
  Receipt Date: 20190122
  Transmission Date: 20190417
  Serious: Yes (Other)
  Sender: FDA-Public Use
  Company Number: US-ABBVIE-18K-163-2543663-00

PATIENT
  Age: 68 Year
  Sex: Female

DRUGS (1)
  1. HUMIRA [Suspect]
     Active Substance: ADALIMUMAB
     Indication: RHEUMATOID ARTHRITIS
     Route: 058

REACTIONS (3)
  - Asthma [Not Recovered/Not Resolved]
  - Hot flush [Not Recovered/Not Resolved]
  - Seizure [Recovering/Resolving]

NARRATIVE: CASE EVENT DATE: 2015
